FAERS Safety Report 17162210 (Version 8)
Quarter: 2020Q4

REPORT INFORMATION
  Report Type: Report from Study
  Country: US (occurrence: US)
  Receive Date: 20191217
  Receipt Date: 20201127
  Transmission Date: 20210113
  Serious: Yes (Other)
  Sender: FDA-Public Use
  Company Number: NVSC2019US069623

PATIENT
  Age: 77 Year
  Sex: Female

DRUGS (3)
  1. BEOVU [Suspect]
     Active Substance: BROLUCIZUMAB-DBLL
     Dosage: UNK, ONCE/SINGLE (LEFT EYE)
     Route: 047
     Dates: start: 20191212
  2. BEOVU [Suspect]
     Active Substance: BROLUCIZUMAB-DBLL
     Indication: NEOVASCULAR AGE-RELATED MACULAR DEGENERATION
     Dosage: UNK
     Route: 047
     Dates: start: 20191018
  3. BEOVU [Suspect]
     Active Substance: BROLUCIZUMAB-DBLL
     Dosage: UNK, EVERY 8 WEEKS
     Route: 047

REACTIONS (5)
  - Optic nerve disorder [Not Recovered/Not Resolved]
  - Eye inflammation [Unknown]
  - Blindness transient [Recovering/Resolving]
  - Conjunctival hyperaemia [Unknown]
  - Eye pain [Recovered/Resolved]

NARRATIVE: CASE EVENT DATE: 20191018
